FAERS Safety Report 9525785 (Version 1)
Quarter: 2013Q1

REPORT INFORMATION
  Report Type: Spontaneous
  Country: US (occurrence: None)
  Receive Date: 20130314
  Receipt Date: 20130314
  Transmission Date: 20140127
  Serious: Yes (Other)
  Sender: FDA-Public Use
  Company Number: 1204USA01860

PATIENT
  Sex: Male

DRUGS (1)
  1. EMEND (FOSAPREPITANT DIMEGLUMINE) [Suspect]
     Dosage: 150 MG, UNK, INTRAVENOUS
     Route: 042

REACTIONS (1)
  - Angioedema [None]
